FAERS Safety Report 8368122-0 (Version None)
Quarter: 2012Q2

REPORT INFORMATION
  Report Type: 
  Country: None (occurrence: None)
  Receive Date: 20120517
  Receipt Date: 20120510
  Transmission Date: 20120825
  Serious: Yes (Other)
  Sender: FDA-Public Use
  Company Number: AU-TEVA-336534USA

PATIENT
  Sex: Male
  Weight: 89 kg

DRUGS (10)
  1. INSULIN ASPART [Concomitant]
  2. INSULIN ASPART [Concomitant]
  3. METFORMIN HCL [Concomitant]
  4. TREANDA [Suspect]
     Dosage: EVERY 21 DAYS ON DAYS 1 AND DAY 2
     Route: 042
     Dates: start: 20120227
  5. INSULIN ASPART [Concomitant]
  6. ATORVASTATIN CALCIUM [Concomitant]
  7. ENOXAPARIN SODIUM [Concomitant]
  8. TREANDA [Suspect]
     Dosage: UID/QD
     Route: 042
     Dates: start: 20120319, end: 20120320
  9. GLICLAZIDE [Concomitant]
  10. TREANDA [Suspect]
     Dosage: UID/QD
     Route: 042
     Dates: start: 20120411

REACTIONS (1)
  - ATRIAL FIBRILLATION [None]
